FAERS Safety Report 4944066-9 (Version None)
Quarter: 2006Q1

REPORT INFORMATION
  Report Type: 
  Country: None (occurrence: None)
  Receive Date: 20060310
  Receipt Date: 20060227
  Transmission Date: 20060701
  Serious: Yes (Hospitalization, Other)
  Sender: FDA-Public Use
  Company Number: A-US2004-07875

PATIENT
  Age: 14 Year
  Sex: Female
  Weight: 48.8 kg

DRUGS (6)
  1. TRACLEER [Suspect]
     Indication: PULMONARY HYPERTENSION
     Dosage: 125 MG, BID, ORAL; SEE IMAGE
     Route: 048
     Dates: start: 20030310, end: 20030915
  2. TRACLEER [Suspect]
     Indication: PULMONARY HYPERTENSION
     Dosage: 125 MG, BID, ORAL; SEE IMAGE
     Route: 048
     Dates: start: 20030916, end: 20041016
  3. FLOLAN [Concomitant]
  4. COUMADIN [Concomitant]
  5. SILDENAFIL CITRATE [Concomitant]
  6. OXYGEN (OXYGEN) [Concomitant]

REACTIONS (19)
  - ACTIVATED PARTIAL THROMBOPLASTIN TIME PROLONGED [None]
  - ALANINE AMINOTRANSFERASE INCREASED [None]
  - ASPARTATE AMINOTRANSFERASE INCREASED [None]
  - BACTERAEMIA [None]
  - BLOOD CULTURE POSITIVE [None]
  - CARDIAC DISORDER [None]
  - DIARRHOEA [None]
  - DILATATION ATRIAL [None]
  - DILATATION VENTRICULAR [None]
  - ECHOCARDIOGRAM ABNORMAL [None]
  - HAEMATEMESIS [None]
  - HAEMOPTYSIS [None]
  - INTERNATIONAL NORMALISED RATIO DECREASED [None]
  - NAUSEA [None]
  - PLATELET COUNT DECREASED [None]
  - PNEUMONIA [None]
  - PROTHROMBIN TIME PROLONGED [None]
  - UPPER RESPIRATORY TRACT INFECTION [None]
  - VENTRICULAR DYSFUNCTION [None]
